FAERS Safety Report 25902621 (Version 1)
Quarter: 2025Q4

REPORT INFORMATION
  Report Type: Spontaneous
  Country: US (occurrence: US)
  Receive Date: 20251009
  Receipt Date: 20251009
  Transmission Date: 20260117
  Serious: No
  Sender: Haleon PLC
  Company Number: US-HALEON-2267139

PATIENT
  Sex: Female

DRUGS (1)
  1. ADVIL [Suspect]
     Active Substance: IBUPROFEN
     Indication: Pain
     Dosage: ONLY 2 TABLETS HAS BEEN USED FROM THE BOTTLE
     Dates: start: 20251006, end: 20251008

REACTIONS (2)
  - Skin laceration [Recovering/Resolving]
  - Product package associated injury [Recovering/Resolving]

NARRATIVE: CASE EVENT DATE: 20251006
